FAERS Safety Report 5813729-5 (Version None)
Quarter: 2008Q3

REPORT INFORMATION
  Report Type: 
  Country: None (occurrence: None)
  Receive Date: 20080711
  Receipt Date: 20080701
  Transmission Date: 20090109
  Serious: Yes (Death, Congenital Anomaly)
  Sender: FDA-Public Use
  Company Number: ADE2008-0240

PATIENT
  Age: 20 Week
  Sex: Male
  Weight: 0.254 kg

DRUGS (4)
  1. ZIDOVUDINE [Suspect]
     Indication: HIV INFECTION
     Dosage: 100MG-QD TRANSPLACENT
     Route: 064
     Dates: start: 20070901, end: 20080401
  2. TRUVADA [Suspect]
     Indication: HIV INFECTION
     Dosage: 1 TAB-QD-TRANSPLACENT
     Route: 064
     Dates: start: 20070901, end: 20080529
  3. ATAZANAVIR [Suspect]
     Indication: HIV INFECTION
     Dosage: 300MG-QD-TRANSPLACENT
     Route: 064
     Dates: start: 20070901, end: 20080529
  4. RITONAVIR [Suspect]
     Indication: HIV INFECTION
     Dosage: 100MG-QD-TRANSPLACENT
     Route: 064
     Dates: start: 20080401, end: 20080529

REACTIONS (6)
  - ABORTION INDUCED [None]
  - DRUG DISPENSING ERROR [None]
  - HYDROCEPHALUS [None]
  - MATERNAL DRUGS AFFECTING FOETUS [None]
  - MULTIPLE CARDIAC DEFECTS [None]
  - WRONG DRUG ADMINISTERED [None]
